FAERS Safety Report 8046656-6 (Version None)
Quarter: 2012Q1

REPORT INFORMATION
  Report Type: 
  Country: None (occurrence: None)
  Receive Date: 20120114
  Receipt Date: 20120110
  Transmission Date: 20120608
  Serious: No
  Sender: FDA-Public Use
  Company Number: US-BAYER-2012-003373

PATIENT
  Age: 60 Year
  Sex: Female
  Weight: 56.689 kg

DRUGS (2)
  1. ALEVE (CAPLET) [Suspect]
     Dosage: 2 DF, ONCE
     Route: 048
     Dates: start: 20120110
  2. SERTRALINE HYDROCHLORIDE [Concomitant]

REACTIONS (7)
  - TONGUE DISORDER [None]
  - ERYTHEMA [None]
  - PRURITUS GENERALISED [None]
  - HYPERSENSITIVITY [None]
  - DIZZINESS [None]
  - SWOLLEN TONGUE [None]
  - FEELING ABNORMAL [None]
